FAERS Safety Report 21458790 (Version 1)
Quarter: 2022Q4

REPORT INFORMATION
  Report Type: Spontaneous
  Country: JP (occurrence: JP)
  Receive Date: 20221014
  Receipt Date: 20221014
  Transmission Date: 20230113
  Serious: Yes (Hospitalization, Other)
  Sender: FDA-Public Use
  Company Number: JP-GLAXOSMITHKLINE-JP2022JPN146341

PATIENT

DRUGS (4)
  1. SOTROVIMAB [Suspect]
     Active Substance: SOTROVIMAB
     Indication: COVID-19
     Dosage: UNK
  2. REMDESIVIR [Suspect]
     Active Substance: REMDESIVIR
     Dosage: UNK
  3. DECADRON [Suspect]
     Active Substance: DEXAMETHASONE
     Dosage: 6 MG/DAY
  4. AMPICILLIN AND SULBACTAM [Concomitant]
     Active Substance: AMPICILLIN SODIUM\SULBACTAM SODIUM
     Dosage: UNK

REACTIONS (6)
  - Acute kidney injury [Unknown]
  - Renal atrophy [Unknown]
  - Rash [Unknown]
  - Oxygen saturation decreased [Recovering/Resolving]
  - COVID-19 [Unknown]
  - Blood glucose increased [Unknown]
